FAERS Safety Report 8365068-9 (Version None)
Quarter: 2012Q2

REPORT INFORMATION
  Report Type: 
  Country: None (occurrence: None)
  Receive Date: 20120516
  Receipt Date: 20120504
  Transmission Date: 20120825
  Serious: No
  Sender: FDA-Public Use
  Company Number: US-ASTRAZENECA-2012SE23441

PATIENT
  Sex: Female
  Weight: 63.5 kg

DRUGS (5)
  1. RANITIDINE [Concomitant]
     Indication: GASTROOESOPHAGEAL REFLUX DISEASE
  2. PULMICORT FLEXHALER [Suspect]
     Indication: ASTHMA
     Dosage: 2 PUFFS DAILY
     Route: 055
     Dates: start: 20090101
  3. GLUCOSAMINE [Concomitant]
     Indication: ARTHRALGIA
  4. VITAMIN D [Concomitant]
     Indication: VITAMIN D DECREASED
  5. PULMICORT FLEXHALER [Suspect]
     Dosage: 180MCG 1 PUFF DAILY
     Route: 055

REACTIONS (3)
  - OFF LABEL USE [None]
  - CIRCUMSTANCE OR INFORMATION CAPABLE OF LEADING TO MEDICATION ERROR [None]
  - ADVERSE EVENT [None]
